FAERS Safety Report 9447885 (Version 1)
Quarter: 2013Q3

REPORT INFORMATION
  Report Type: Spontaneous
  Country: US (occurrence: None)
  Receive Date: 20130807
  Receipt Date: 20130807
  Transmission Date: 20140515
  Serious: No
  Sender: FDA-Public Use
  Company Number: None

PATIENT
  Age: 67 Year
  Sex: Female
  Weight: 62.6 kg

DRUGS (1)
  1. CYMBALTA [Suspect]
     Indication: FIBROMYALGIA
     Dates: start: 20130801, end: 20130801

REACTIONS (7)
  - Abdominal pain upper [None]
  - Chills [None]
  - Diarrhoea [None]
  - Eructation [None]
  - Flatulence [None]
  - Insomnia [None]
  - Feeling abnormal [None]
